FAERS Safety Report 11058271 (Version 1)
Quarter: 2015Q2

REPORT INFORMATION
  Report Type: Spontaneous
  Country: KR (occurrence: None)
  Receive Date: 20150421
  Receipt Date: 20150421
  Transmission Date: 20150821
  Serious: Yes (Death, Life-Threatening, Other)
  Sender: FDA-Public Use
  Company Number: FK201501815

PATIENT
  Age: 78 Year
  Sex: Male

DRUGS (4)
  1. IMIPENEM/CILASTATIN (NEWPENEM) [Suspect]
     Active Substance: CILASTATIN SODIUM\IMIPENEM
     Indication: PRODUCT USED FOR UNKNOWN INDICATION
     Dosage: WITHIN 72 HOURS OF COLISTIN
  2. BACTRIM [Suspect]
     Active Substance: SULFAMETHOXAZOLE\TRIMETHOPRIM
     Indication: PRODUCT USED FOR UNKNOWN INDICATION
  3. RIFAMPICIN (RIFAMPICIN) [Suspect]
     Active Substance: RIFAMPIN
     Indication: PRODUCT USED FOR UNKNOWN INDICATION
  4. COLISTIMETHATE [Suspect]
     Active Substance: COLISTIMETHATE SODIUM
     Indication: PNEUMONIA BACTERIAL
     Dosage: 75 MG, INHALATION BY NEBULIZER

REACTIONS (8)
  - Clostridium difficile sepsis [None]
  - Blood creatinine increased [None]
  - Pathogen resistance [None]
  - Clostridium difficile colitis [None]
  - Blood albumin decreased [None]
  - Blood urea increased [None]
  - Glomerular filtration rate decreased [None]
  - Product use issue [None]
